FAERS Safety Report 15705963 (Version 1)
Quarter: 2018Q4

REPORT INFORMATION
  Report Type: Spontaneous
  Country: GB (occurrence: GB)
  Receive Date: 20181210
  Receipt Date: 20181210
  Transmission Date: 20190205
  Serious: Yes (Other)
  Sender: FDA-Public Use
  Company Number: GB-TEVA-2018-GB-984521

PATIENT
  Age: 49 Year
  Sex: Female
  Weight: 85 kg

DRUGS (2)
  1. BISOPROLOL [Concomitant]
     Active Substance: BISOPROLOL
     Dosage: 1 DOSAGE FORMS DAILY;
     Dates: start: 20181016
  2. LISINOPRIL. [Suspect]
     Active Substance: LISINOPRIL
     Route: 065
     Dates: start: 20181109

REACTIONS (1)
  - Throat tightness [Recovered/Resolved]

NARRATIVE: CASE EVENT DATE: 20181109
